FAERS Safety Report 16632945 (Version 4)
Quarter: 2019Q3

REPORT INFORMATION
  Report Type: Spontaneous
  Country: US (occurrence: US)
  Receive Date: 20190725
  Receipt Date: 20190906
  Transmission Date: 20191004
  Serious: No
  Sender: FDA-Public Use
  Company Number: US-PFIZER INC-2019314448

PATIENT
  Age: 74 Year
  Sex: Male
  Weight: 81 kg

DRUGS (2)
  1. METHOTREXATE SODIUM. [Suspect]
     Active Substance: METHOTREXATE SODIUM
     Indication: ANALGESIC THERAPY
     Dosage: 2.5 MG, 1X/DAY
     Dates: start: 20170628
  2. PREDNISONE. [Suspect]
     Active Substance: PREDNISONE
     Indication: ANALGESIC THERAPY
     Dosage: 5 MG, 1X/DAY
     Dates: start: 20170628

REACTIONS (2)
  - Drug ineffective for unapproved indication [Unknown]
  - Off label use [Unknown]
